FAERS Safety Report 7062734-2 (Version None)
Quarter: 2010Q4

REPORT INFORMATION
  Report Type: 
  Country: None (occurrence: None)
  Receive Date: 20101026
  Receipt Date: 20091204
  Transmission Date: 20110411
  Serious: No
  Sender: FDA-Public Use
  Company Number: US-PFIZER INC-2009307292

PATIENT
  Sex: Male

DRUGS (3)
  1. LIPITOR [Suspect]
  2. ATENOLOL [Concomitant]
  3. ALISKIREN [Concomitant]

REACTIONS (2)
  - BLOOD CREATINE PHOSPHOKINASE INCREASED [None]
  - SENSATION OF HEAVINESS [None]
